FAERS Safety Report 21769806 (Version 1)
Quarter: 2022Q4

REPORT INFORMATION
  Report Type: Report from Study
  Country: KR (occurrence: None)
  Receive Date: 20221223
  Receipt Date: 20221223
  Transmission Date: 20230112
  Serious: Yes (Death)
  Sender: FDA-Public Use
  Company Number: KR-ROCHE-3245019

PATIENT
  Age: 57 Year
  Sex: Male
  Weight: 62.299 kg

DRUGS (6)
  1. CAPECITABINE [Suspect]
     Active Substance: CAPECITABINE
     Indication: Gastric cancer
     Dosage: ON 17/JAN/2018, HE RECEIVED LAST DOSE OF CAPECITABINE
     Route: 048
     Dates: start: 20171101, end: 20180117
  2. PACLITAXEL [Suspect]
     Active Substance: PACLITAXEL
     Indication: Gastric cancer
     Route: 042
     Dates: start: 20180131, end: 20180131
  3. NIVOLUMAB [Suspect]
     Active Substance: NIVOLUMAB
     Indication: Gastric cancer
     Dosage: ON 03/JAN/2018, HE RECEIVED LAST DOSE OF NIVOLUMAB VS PLACEBO
     Route: 041
     Dates: start: 20171101
  4. RANITIDINE [Concomitant]
     Active Substance: RANITIDINE
     Dates: start: 20180131, end: 20180131
  5. ACECLOFENAC [Concomitant]
     Active Substance: ACECLOFENAC
     Dates: start: 20180131, end: 20180202
  6. DEXAMETHASONE [Concomitant]
     Active Substance: DEXAMETHASONE
     Dates: start: 20180131, end: 20180202

REACTIONS (2)
  - Respiratory failure [Fatal]
  - Pulmonary oedema [Fatal]

NARRATIVE: CASE EVENT DATE: 20180202
